FAERS Safety Report 25504518 (Version 2)
Quarter: 2025Q3

REPORT INFORMATION
  Report Type: Spontaneous
  Country: EU (occurrence: EU)
  Receive Date: 20250702
  Receipt Date: 20250709
  Transmission Date: 20251020
  Serious: Yes (Death, Hospitalization)
  Sender: PFIZER
  Company Number: None

PATIENT
  Age: 78 Year
  Sex: Female

DRUGS (19)
  1. XELJANZ [Suspect]
     Active Substance: TOFACITINIB CITRATE
     Indication: Rheumatoid arthritis
     Dosage: 5 MG, 2X/DAY
     Route: 048
     Dates: start: 20190922, end: 20250129
  2. MEDROL [Concomitant]
     Active Substance: METHYLPREDNISOLONE
  3. OMEPRAZOLE [Concomitant]
     Active Substance: OMEPRAZOLE
  4. CITALOPRAM HYDROCHLORIDE [Concomitant]
     Active Substance: CITALOPRAM HYDROCHLORIDE
  5. XANAX [Concomitant]
     Active Substance: ALPRAZOLAM
  6. BISOPROLOL FUMARATE [Concomitant]
     Active Substance: BISOPROLOL FUMARATE
  7. ALLOPURINOL [Concomitant]
     Active Substance: ALLOPURINOL
  8. HUMALOG [Concomitant]
     Active Substance: INSULIN LISPRO
  9. ASPIRIN\CLOPIDOGREL [Concomitant]
     Active Substance: ASPIRIN\CLOPIDOGREL
  10. IRBESARTAN [Concomitant]
     Active Substance: IRBESARTAN
  11. LASIX [Concomitant]
     Active Substance: FUROSEMIDE
  12. ATORVASTATIN [Concomitant]
     Active Substance: ATORVASTATIN
  13. EZETIMIBE [Concomitant]
     Active Substance: EZETIMIBE
  14. FOLIC ACID [Concomitant]
     Active Substance: FOLIC ACID
  15. REMERON [Concomitant]
     Active Substance: MIRTAZAPINE
  16. TRESIBA [Concomitant]
     Active Substance: INSULIN DEGLUDEC
  17. FOSAVANCE [Concomitant]
     Active Substance: ALENDRONATE SODIUM\CHOLECALCIFEROL
  18. PROLIA [Concomitant]
     Active Substance: DENOSUMAB
  19. INSULIN NOS [Concomitant]
     Active Substance: INSULIN NOS
     Indication: Diabetes mellitus

REACTIONS (3)
  - Product use issue [Fatal]
  - Myocardial infarction [Fatal]
  - Emphysema [Fatal]

NARRATIVE: CASE EVENT DATE: 20190922
